FAERS Safety Report 5248461-2 (Version None)
Quarter: 2007Q1

REPORT INFORMATION
  Report Type: 
  Country: None (occurrence: None)
  Receive Date: 20070227
  Receipt Date: 20070215
  Transmission Date: 20070707
  Serious: Yes (Other)
  Sender: FDA-Public Use
  Company Number: FR-PFIZER INC-2007014039

PATIENT
  Sex: Male

DRUGS (6)
  1. LYRICA [Suspect]
     Dosage: DAILY DOSE:900MG
  2. ALL OTHER THERAPEUTIC PRODUCTS [Concomitant]
  3. RIVOTRIL [Concomitant]
  4. MORPHINE [Concomitant]
  5. XANAX [Concomitant]
  6. ZOLPIDEM TARTRATE [Concomitant]

REACTIONS (2)
  - DRUG TOXICITY [None]
  - INTERVERTEBRAL DISC OPERATION [None]
